FAERS Safety Report 9307486 (Version 1)
Quarter: 2013Q2

REPORT INFORMATION
  Report Type: Spontaneous
  Country: US (occurrence: US)
  Receive Date: 20130524
  Receipt Date: 20130524
  Transmission Date: 20140414
  Serious: Yes (Other)
  Sender: FDA-Public Use
  Company Number: US-ROCHE-1228307

PATIENT
  Age: 53 Year
  Sex: Male

DRUGS (4)
  1. TARCEVA [Suspect]
     Indication: LUNG NEOPLASM MALIGNANT
     Route: 065
     Dates: start: 201110
  2. AVASTIN [Suspect]
     Indication: LUNG NEOPLASM MALIGNANT
     Route: 065
  3. ALIMTA [Concomitant]
  4. CARBOPLATIN [Concomitant]

REACTIONS (2)
  - Hepatic neoplasm [Unknown]
  - Renal neoplasm [Unknown]
